FAERS Safety Report 18034474 (Version 1)
Quarter: 2020Q3

REPORT INFORMATION
  Report Type: Report from Study
  Country: UA (occurrence: UA)
  Receive Date: 20200716
  Receipt Date: 20200716
  Transmission Date: 20201103
  Serious: Yes (Other)
  Sender: FDA-Public Use
  Company Number: UA-SEATTLE GENETICS-2019SGN03875

PATIENT
  Sex: Male
  Weight: 100 kg

DRUGS (1)
  1. BRENTUXIMAB VEDOTIN [Suspect]
     Active Substance: BRENTUXIMAB VEDOTIN
     Indication: HODGKIN^S DISEASE
     Dosage: 165 MILLIGRAM
     Route: 042
     Dates: start: 20190401, end: 20191007

REACTIONS (4)
  - Neutropenia [Unknown]
  - Hypoaesthesia [Unknown]
  - Body temperature increased [Unknown]
  - Hodgkin^s disease [Unknown]
